FAERS Safety Report 8573305-0 (Version None)
Quarter: 2012Q3

REPORT INFORMATION
  Report Type: 
  Country: None (occurrence: None)
  Receive Date: 20120806
  Receipt Date: 20120730
  Transmission Date: 20120928
  Serious: Yes (Other)
  Sender: FDA-Public Use
  Company Number: US-INCYTE CORPORATION-2012IN001045

PATIENT
  Sex: Female
  Weight: 56.689 kg

DRUGS (7)
  1. LOVAZA [Concomitant]
  2. FERROUS SULFATE TAB [Concomitant]
  3. FLUOXETINE HCL [Concomitant]
  4. HYDROCODONE BITARTRATE + ACETAMINOPHEN [Concomitant]
  5. LEVOTHYROXINE SODIUM [Concomitant]
  6. JAKAFI [Suspect]
     Indication: MYELOFIBROSIS
     Dosage: 10 MG, BID
     Route: 048
     Dates: start: 20120213, end: 20120510
  7. LORAZEPAM [Concomitant]

REACTIONS (9)
  - EARLY SATIETY [None]
  - FATIGUE [None]
  - DYSPNOEA [None]
  - URINARY TRACT INFECTION [None]
  - PANCYTOPENIA [None]
  - GASTROENTERITIS VIRAL [None]
  - WEIGHT DECREASED [None]
  - ANAEMIA [None]
  - APHTHOUS STOMATITIS [None]
